FAERS Safety Report 5045476-4 (Version None)
Quarter: 2006Q2

REPORT INFORMATION
  Report Type: 
  Country: None (occurrence: None)
  Receive Date: 20060601
  Receipt Date: 20060314
  Transmission Date: 20061013
  Serious: No
  Sender: FDA-Public Use
  Company Number: 2006-BP-02929BP

PATIENT
  Age: 72 Year
  Sex: Male

DRUGS (8)
  1. SPIRIVA [Suspect]
     Indication: CHRONIC OBSTRUCTIVE PULMONARY DISEASE
     Dosage: 18 MCG (18 MCG), IH
     Route: 055
     Dates: start: 20060306
  2. SPIRIVA [Suspect]
  3. TUMS (CALCIUM CARBONATE) [Suspect]
     Indication: DYSPEPSIA
  4. ADVAIR (SERETIDE /01420901/ ) [Concomitant]
  5. PROZAC [Concomitant]
  6. FLOMAX [Concomitant]
  7. ZOCOR [Concomitant]
  8. ALBUTEROL [Concomitant]

REACTIONS (4)
  - COUGH [None]
  - DYSPNOEA [None]
  - INSOMNIA [None]
  - PRODUCTIVE COUGH [None]
